FAERS Safety Report 9197010 (Version 1)
Quarter: 2013Q1

REPORT INFORMATION
  Report Type: Spontaneous
  Country: GB (occurrence: GB)
  Receive Date: 20130328
  Receipt Date: 20130328
  Transmission Date: 20140127
  Serious: Yes (Other)
  Sender: FDA-Public Use
  Company Number: GB-RANBAXY-2013R1-66430

PATIENT
  Age: 18 Year
  Sex: Male
  Weight: 49.8 kg

DRUGS (2)
  1. ISOTRETINOIN [Suspect]
     Indication: SCAR
     Dosage: UNK
     Route: 048
     Dates: start: 20121126, end: 20121226
  2. TRIMETHOPRIM [Concomitant]
     Indication: PRODUCT USED FOR UNKNOWN INDICATION
     Dosage: UNK
     Route: 065

REACTIONS (2)
  - Depression [Recovered/Resolved]
  - Suicidal ideation [Recovered/Resolved]
